FAERS Safety Report 24270671 (Version 2)
Quarter: 2024Q3

REPORT INFORMATION
  Report Type: Report from Study
  Country: US (occurrence: US)
  Receive Date: 20240831
  Receipt Date: 20240902
  Transmission Date: 20241016
  Serious: Yes (Other)
  Sender: AUROBINDO
  Company Number: US-AUROBINDO-AUR-APL-2024-042012

PATIENT
  Age: 54 Year
  Sex: Male

DRUGS (8)
  1. BACLOFEN [Suspect]
     Active Substance: BACLOFEN
     Indication: Detoxification
     Dosage: 80 MILLIGRAM, ONCE A DAY
     Route: 065
  2. 4-AMINO-3-PHENYLBUTYRIC ACID [Concomitant]
     Active Substance: 4-AMINO-3-PHENYLBUTYRIC ACID
     Indication: Cognitive disorder
     Dosage: 8 GRAM, ONCE A DAY
     Route: 065
  3. 4-AMINO-3-PHENYLBUTYRIC ACID [Concomitant]
     Active Substance: 4-AMINO-3-PHENYLBUTYRIC ACID
     Dosage: 14 GRAM, ONCE A DAY
     Route: 065
  4. GABAPENTIN [Concomitant]
     Active Substance: GABAPENTIN
     Indication: Hallucination
     Dosage: 300 MILLIGRAM, 3 TIMES A DAY
     Route: 065
  5. CLONIDINE [Concomitant]
     Active Substance: CLONIDINE
     Indication: Product used for unknown indication
     Dosage: 0.1 MILLIGRAM, 3 TIMES A DAY
     Route: 065
  6. LORAZEPAM [Concomitant]
     Active Substance: LORAZEPAM
     Indication: Withdrawal syndrome
     Dosage: 3 MILLIGRAM, ONCE A DAY
     Route: 065
  7. LORAZEPAM [Concomitant]
     Active Substance: LORAZEPAM
     Dosage: 24 MILLIGRAM, ONCE A DAY
     Route: 065
  8. PROPRANOLOL [Concomitant]
     Active Substance: PROPRANOLOL HYDROCHLORIDE
     Indication: Hypertension
     Dosage: UNK
     Route: 065

REACTIONS (4)
  - Drug dependence [Unknown]
  - Anxiety [Unknown]
  - Irritability [Unknown]
  - Drug withdrawal syndrome [Unknown]
